FAERS Safety Report 16806607 (Version 4)
Quarter: 2020Q4

REPORT INFORMATION
  Report Type: Spontaneous
  Country: US (occurrence: US)
  Receive Date: 20190913
  Receipt Date: 20201203
  Transmission Date: 20210113
  Serious: No
  Sender: FDA-Public Use
  Company Number: US-SA-2019SA255465

PATIENT

DRUGS (12)
  1. MOTRIN IB [Concomitant]
     Active Substance: IBUPROFEN
  2. DUPIXENT [Suspect]
     Active Substance: DUPILUMAB
     Indication: DERMATITIS ALLERGIC
     Dosage: 300 MG, QOW
     Route: 058
     Dates: start: 201906, end: 20191023
  3. FLUOCINONIDE. [Concomitant]
     Active Substance: FLUOCINONIDE
  4. DESONIDE. [Concomitant]
     Active Substance: DESONIDE
  5. EUCRISA [Concomitant]
     Active Substance: CRISABOROLE
  6. LOCOID [Concomitant]
     Active Substance: HYDROCORTISONE BUTYRATE
     Dosage: UNK
  7. BETAMETHASONE DIPROPIONATE. [Concomitant]
     Active Substance: BETAMETHASONE DIPROPIONATE
  8. EPICERAM [Concomitant]
     Active Substance: DEVICE
  9. HYDROXYZINE HYDROCHLORIDE. [Concomitant]
     Active Substance: HYDROXYZINE HYDROCHLORIDE
  10. DUPIXENT [Suspect]
     Active Substance: DUPILUMAB
     Indication: DERMATITIS ATOPIC
     Dosage: 300 MG, QOW
     Route: 058
     Dates: start: 201912
  11. HYDROCORTISONE. [Concomitant]
     Active Substance: HYDROCORTISONE
  12. CLOBETASOL [Concomitant]
     Active Substance: CLOBETASOL

REACTIONS (17)
  - Skin burning sensation [Unknown]
  - Skin swelling [Unknown]
  - Skin exfoliation [Unknown]
  - Eczema [Unknown]
  - Rash [Unknown]
  - Eye discharge [Unknown]
  - Oral herpes [Unknown]
  - Pruritus [Unknown]
  - Dry skin [Unknown]
  - Dry skin [Unknown]
  - Pruritus [Unknown]
  - Rash pruritic [Unknown]
  - Lip dry [Unknown]
  - Skin fissures [Unknown]
  - Sleep disorder [Unknown]
  - Skin exfoliation [Unknown]
  - Therapeutic response decreased [Unknown]

NARRATIVE: CASE EVENT DATE: 2019
